FAERS Safety Report 9256830 (Version 1)
Quarter: 2013Q2

REPORT INFORMATION
  Report Type: Spontaneous
  Country: US (occurrence: None)
  Receive Date: 20130423
  Receipt Date: 20130423
  Transmission Date: 20140414
  Serious: Yes (Hospitalization)
  Sender: FDA-Public Use
  Company Number: None

PATIENT
  Age: 81 Year
  Sex: Female
  Weight: 124.1 kg

DRUGS (2)
  1. PRADAXA [Suspect]
     Indication: ATRIAL FIBRILLATION
     Dosage: 150 MG TWICE A DAY PO
     Route: 048
     Dates: start: 20130413, end: 20130420
  2. XARELTO [Suspect]
     Indication: ATRIAL FIBRILLATION

REACTIONS (3)
  - Rectal haemorrhage [None]
  - Hypotension [None]
  - Anaemia [None]
